FAERS Safety Report 4401402-X (Version None)
Quarter: 2004Q3

REPORT INFORMATION
  Report Type: 
  Country: None (occurrence: None)
  Receive Date: 20040907
  Receipt Date: 20040420
  Transmission Date: 20050211
  Serious: No
  Sender: FDA-Public Use
  Company Number: US-BRISTOL-MYERS SQUIBB COMPANY-12565503

PATIENT
  Age: 85 Year
  Sex: Male
  Weight: 63 kg

DRUGS (3)
  1. COUMADIN [Suspect]
     Indication: THROMBOSIS
     Dosage: CONSUMER ON COUMADIN ON VARYING DOSES FOR 3-5 YEARS
     Route: 048
  2. SYNTHROID [Concomitant]
  3. CAPTOPRIL [Concomitant]

REACTIONS (1)
  - PRURITUS [None]
